FAERS Safety Report 5043468-2 (Version None)
Quarter: 2006Q3

REPORT INFORMATION
  Report Type: 
  Country: None (occurrence: None)
  Receive Date: 20060705
  Receipt Date: 20060512
  Transmission Date: 20061208
  Serious: Yes (Hospitalization, Other)
  Sender: FDA-Public Use
  Company Number: JP-BOEHRINGER INGELHEIM PHARMACEUTICALS, INC.-2006-DE-02463GD

PATIENT
  Sex: Male

DRUGS (13)
  1. MEXILETINE HYDROCHLORIDE [Suspect]
     Indication: VENTRICULAR EXTRASYSTOLES
     Route: 048
     Dates: start: 19890822, end: 19901112
  2. MEXILETINE HYDROCHLORIDE [Suspect]
     Indication: PROPHYLAXIS
  3. ISOPRENALINE HCL [Suspect]
     Indication: TORSADE DE POINTES
     Dosage: CONTINUOUS INFUSION (0.02 MCG/KG PER MIN)
  4. ISOPRENALINE HCL [Suspect]
     Indication: DISEASE RECURRENCE
  5. LIDOCAINE [Suspect]
     Indication: TORSADE DE POINTES
     Dosage: BOLUS INJECTION (1 MG/KG) AND CONTINUOUS INFUSION (2 MG/KG PER H)
  6. LIDOCAINE [Suspect]
     Indication: DISEASE RECURRENCE
  7. BETA-BLOCKER [Suspect]
     Indication: LONG QT SYNDROME CONGENITAL
     Route: 048
  8. PHENYTOIN [Suspect]
     Indication: TORSADE DE POINTES
  9. PHENYTOIN [Suspect]
     Indication: DISEASE RECURRENCE
  10. ATROPINE SULFATE [Suspect]
     Indication: TORSADE DE POINTES
  11. ATROPINE SULFATE [Suspect]
     Indication: DISEASE RECURRENCE
  12. NADIC [Concomitant]
     Indication: PROPHYLAXIS
     Route: 048
     Dates: start: 19890208, end: 19901111
  13. MAGNESIUM OXIDE [Concomitant]
     Dates: start: 19901112

REACTIONS (3)
  - DISEASE RECURRENCE [None]
  - DRUG INEFFECTIVE [None]
  - SYNCOPE [None]
